APPROVED DRUG PRODUCT: LUVOX
Active Ingredient: FLUVOXAMINE MALEATE
Strength: 150MG **Federal Register determination that product was not discontinued or withdrawn for safety or effectiveness reasons**
Dosage Form/Route: TABLET;ORAL
Application: N020243 | Product #004
Applicant: SOLVAY PHARMACEUTICALS
Approved: Dec 5, 1994 | RLD: Yes | RS: No | Type: DISCN